FAERS Safety Report 6600722-8 (Version None)
Quarter: 2010Q1

REPORT INFORMATION
  Report Type: 
  Country: None (occurrence: None)
  Receive Date: 20100223
  Receipt Date: 20100223
  Transmission Date: 20100710
  Serious: Yes (Other)
  Sender: FDA-Public Use
  Company Number: None

PATIENT
  Age: 56 Year
  Sex: Female
  Weight: 117 kg

DRUGS (12)
  1. VENOFER [Suspect]
     Indication: ANAEMIA
     Dosage: 200 MG DAILY X 2 DAYS IV  (01/07/2010 RECEIVED PARTIAL DOSE)
     Route: 042
     Dates: start: 20100107, end: 20100107
  2. ALLOPURINOL [Concomitant]
  3. AMLODIPINE [Concomitant]
  4. ASPIRIN [Concomitant]
  5. CIPROFLOXACIN [Concomitant]
  6. FERROUS SULFATE TAB [Concomitant]
  7. GLIPIZIDE [Concomitant]
  8. CLONIDINE [Concomitant]
  9. HYDRALAZINE HCL [Concomitant]
  10. LABETALOL HCL [Concomitant]
  11. TERAZOSIN HCL [Concomitant]
  12. SIMVASTATIN [Concomitant]

REACTIONS (4)
  - ANXIETY [None]
  - CHEST DISCOMFORT [None]
  - DYSPNOEA [None]
  - ELECTROCARDIOGRAM RR INTERVAL PROLONGED [None]
